FAERS Safety Report 4809111-X (Version None)
Quarter: 2005Q4

REPORT INFORMATION
  Report Type: 
  Country: None (occurrence: None)
  Receive Date: 20051024
  Receipt Date: 20051024
  Transmission Date: 20060501
  Serious: Yes (Life-Threatening)
  Sender: FDA-Public Use
  Company Number: None

PATIENT
  Sex: Female
  Weight: 88 kg

DRUGS (3)
  1. VANCOMYCIN [Suspect]
     Indication: BACTERAEMIA
     Dosage: 1 G Q 12 HRS IV
     Route: 042
     Dates: start: 20050715, end: 20050729
  2. VANCOMYCIN [Suspect]
  3. VANCOMYCIN [Suspect]

REACTIONS (1)
  - NEUTROPENIA [None]
